FAERS Safety Report 7831984-7 (Version None)
Quarter: 2011Q4

REPORT INFORMATION
  Report Type: 
  Country: None (occurrence: None)
  Receive Date: 20111021
  Receipt Date: 20111004
  Transmission Date: 20120403
  Serious: Yes (Death)
  Sender: FDA-Public Use
  Company Number: CM-ROCHE-1000333

PATIENT
  Age: 47 Year
  Sex: Female

DRUGS (3)
  1. COPEGUS [Suspect]
     Indication: HEPATITIS C
     Route: 065
     Dates: start: 20110726
  2. CANDESARTAN CILEXETIL AND HYDROCHLOROTHIAZIDE [Concomitant]
  3. PEGASYS [Suspect]
     Indication: HEPATITIS C
     Route: 065
     Dates: start: 20110726

REACTIONS (4)
  - JAUNDICE [None]
  - DEATH [None]
  - ARTHRALGIA [None]
  - ASTHENIA [None]
